FAERS Safety Report 4688390-6 (Version None)
Quarter: 2005Q2

REPORT INFORMATION
  Report Type: 
  Country: None (occurrence: None)
  Receive Date: 20050610
  Receipt Date: 20050610
  Transmission Date: 20051028
  Serious: Yes (Death)
  Sender: FDA-Public Use
  Company Number: None

PATIENT
  Age: 78 Year
  Sex: Male

DRUGS (10)
  1. AMOXICILLIN [Suspect]
     Indication: RESPIRATORY TRACT INFECTION
     Dosage: FIRST DOSE
     Dates: start: 20050329
  2. COUMADIN [Concomitant]
  3. SPIRONOLACTONE [Concomitant]
  4. AMARYL [Concomitant]
  5. ISORDIL [Concomitant]
  6. SPIRVA [Concomitant]
  7. LASIX [Concomitant]
  8. COREG [Concomitant]
  9. AEROBID [Concomitant]
  10. ALB NEB [Concomitant]

REACTIONS (4)
  - CARDIO-RESPIRATORY ARREST [None]
  - LOSS OF CONSCIOUSNESS [None]
  - PULSE ABSENT [None]
  - TONGUE DISORDER [None]
